FAERS Safety Report 8110640-4 (Version None)
Quarter: 2012Q1

REPORT INFORMATION
  Report Type: 
  Country: None (occurrence: None)
  Receive Date: 20120203
  Receipt Date: 20120123
  Transmission Date: 20120608
  Serious: Yes (Death, Hospitalization)
  Sender: FDA-Public Use
  Company Number: US-SHIRE-ALL1-2011-04822

PATIENT
  Sex: Male
  Weight: 90.703 kg

DRUGS (6)
  1. PENTASA [Suspect]
     Indication: CROHN'S DISEASE
  2. PENTASA [Suspect]
     Indication: DIARRHOEA
  3. COUMADIN [Concomitant]
     Indication: ATRIAL FIBRILLATION
     Dosage: UNK, UNKNOWN
     Route: 048
  4. COLESTID [Concomitant]
     Indication: PRODUCT USED FOR UNKNOWN INDICATION
     Dosage: UNK, UNKNOWN
     Route: 065
  5. PENTASA [Suspect]
     Indication: COLITIS ULCERATIVE
     Dosage: 2 UNKNOWN MG CAPSULES, 4 TIMES A DAY, UP TO 8 A DAY
     Route: 048
     Dates: start: 20100101
  6. PREDNISONE TAB [Concomitant]
     Indication: PRODUCT USED FOR UNKNOWN INDICATION
     Dosage: UNK, UNKNOWN
     Route: 065

REACTIONS (6)
  - HYPOXIA [None]
  - ACIDOSIS [None]
  - OFF LABEL USE [None]
  - DYSPNOEA [None]
  - HYPOKALAEMIA [None]
  - CARDIAC FAILURE CONGESTIVE [None]
